FAERS Safety Report 21098169 (Version 1)
Quarter: 2022Q3

REPORT INFORMATION
  Report Type: Spontaneous
  Country: US (occurrence: None)
  Receive Date: 20220718
  Receipt Date: 20220718
  Transmission Date: 20221027
  Serious: Yes (Hospitalization)
  Sender: FDA-Public Use
  Company Number: None

PATIENT
  Sex: Female

DRUGS (1)
  1. IBRANCE [Suspect]
     Active Substance: PALBOCICLIB
     Indication: Breast cancer female
     Dosage: 75MG ? TAKE 1 TABLET BY MOUTH DAILY FOR 7 DAYS, HOLD FOR 7 DAYS, THEN REPEAT CYCLE?
     Route: 048
     Dates: start: 20210813, end: 20220629

REACTIONS (2)
  - Hospitalisation [None]
  - Therapy cessation [None]
